FAERS Safety Report 18936159 (Version 1)
Quarter: 2021Q1

REPORT INFORMATION
  Report Type: Spontaneous
  Country: DE (occurrence: DE)
  Receive Date: 20210224
  Receipt Date: 20210224
  Transmission Date: 20210420
  Serious: Yes (Hospitalization)
  Sender: FDA-Public Use
  Company Number: DE-TEVA-2021-DE-1882977

PATIENT
  Sex: Female

DRUGS (9)
  1. KAFTRIO 75 MG/50 MG/100 MG [Interacting]
     Active Substance: ELEXACAFTOR\IVACAFTOR\TEZACAFTOR
     Indication: CYSTIC FIBROSIS
     Dosage: FOR ACTIVE INGREDIENT IVACAFTOR THE STRENGTH IS 75 MILLIGRAM .?FOR ACTIVE INGREDIENT ELEXACAFTOR TH
     Dates: start: 20201210, end: 202012
  2. KALYDECO [Interacting]
     Active Substance: IVACAFTOR
     Dosage: 150MILLIGRAM
  3. KALYDECO [Interacting]
     Active Substance: IVACAFTOR
     Dosage: 150 MILLIGRAM DAILY; 1 TABLET IN THE EVENING
     Dates: start: 20200929
  4. KAFTRIO 75 MG/50 MG/100 MG [Interacting]
     Active Substance: ELEXACAFTOR\IVACAFTOR\TEZACAFTOR
     Dosage: FOR ACTIVE INGREDIENT IVACAFTOR THE STRENGTH IS 75 MILLIGRAM .?FOR ACTIVE INGREDIENT ELEXACAFTOR TH
     Dates: start: 202012, end: 202012
  5. KALYDECO [Interacting]
     Active Substance: IVACAFTOR
     Dosage: 150MILLIGRAM
     Dates: start: 202012
  6. KAFTRIO 75 MG/50 MG/100 MG [Interacting]
     Active Substance: ELEXACAFTOR\IVACAFTOR\TEZACAFTOR
     Dosage: FOR ACTIVE INGREDIENT IVACAFTOR THE STRENGTH IS 75 MILLIGRAM .?FOR ACTIVE INGREDIENT ELEXACAFTOR TH
     Dates: start: 202012
  7. COTRIM FORTE 960 MG [Suspect]
     Active Substance: SULFAMETHOXAZOLE\TRIMETHOPRIM
     Indication: C-REACTIVE PROTEIN INCREASED
     Dosage: 2DOSAGEFORM
     Dates: start: 20201007
  8. KAFTRIO 75 MG/50 MG/100 MG [Interacting]
     Active Substance: ELEXACAFTOR\IVACAFTOR\TEZACAFTOR
     Dosage: 2 TABLETS IN THE MORNING?FOR ACTIVE INGREDIENT IVACAFTOR THE STRENGTH IS 75 MILLIGRAM .?FOR ACTIVE I
     Dates: start: 20200929
  9. KALYDECO [Interacting]
     Active Substance: IVACAFTOR
     Indication: CYSTIC FIBROSIS
     Dosage: 150MILLIGRAM
     Dates: start: 20201210, end: 202012

REACTIONS (8)
  - Respiratory tract haemorrhage [Recovered/Resolved]
  - Oxygen saturation decreased [Recovered/Resolved]
  - Drug interaction [Unknown]
  - Condition aggravated [Unknown]
  - Bronchial secretion retention [Recovered/Resolved]
  - Heart rate increased [Recovered/Resolved]
  - Accidental overdose [Unknown]
  - Sputum increased [Recovered/Resolved]

NARRATIVE: CASE EVENT DATE: 202010
